FAERS Safety Report 25315472 (Version 1)
Quarter: 2025Q2

REPORT INFORMATION
  Report Type: Report from Study
  Country: CA (occurrence: CA)
  Receive Date: 20250514
  Receipt Date: 20250514
  Transmission Date: 20250716
  Serious: Yes (Hospitalization)
  Sender: JOHNSON AND JOHNSON
  Company Number: CA-JNJFOC-20250501648

PATIENT
  Age: 62 Year
  Sex: Female

DRUGS (2)
  1. SIMPONI [Suspect]
     Active Substance: GOLIMUMAB
     Indication: Rheumatoid arthritis
     Dosage: LAST DATE OF ADMINISTRATION:01-APR-2025
     Route: 058
     Dates: start: 20240327, end: 20250501
  2. SIMPONI [Suspect]
     Active Substance: GOLIMUMAB
     Dosage: LAST DATE OF ADMINISTRATION:01-APR-2025
     Route: 058
     Dates: start: 20240327

REACTIONS (2)
  - Lower respiratory tract infection [Unknown]
  - Influenza [Unknown]

NARRATIVE: CASE EVENT DATE: 20250101
